FAERS Safety Report 19499883 (Version 2)
Quarter: 2021Q3

REPORT INFORMATION
  Report Type: Spontaneous
  Country: BR (occurrence: BR)
  Receive Date: 20210706
  Receipt Date: 20210817
  Transmission Date: 20211014
  Serious: Yes (Other)
  Sender: FDA-Public Use
  Company Number: BR-PFIZER INC-2021748633

PATIENT
  Sex: Male

DRUGS (2)
  1. CAVERJECT [Suspect]
     Active Substance: ALPROSTADIL
     Dosage: 20 UG
  2. CAVERJECT [Suspect]
     Active Substance: ALPROSTADIL
     Dosage: 10 UG

REACTIONS (3)
  - Penile haemorrhage [Recovered/Resolved]
  - Product packaging issue [Unknown]
  - Drug ineffective [Unknown]
